FAERS Safety Report 13600768 (Version 5)
Quarter: 2018Q3

REPORT INFORMATION
  Report Type: Report from Study
  Country: IL (occurrence: IL)
  Receive Date: 20170601
  Receipt Date: 20180706
  Transmission Date: 20181010
  Serious: Yes (Hospitalization)
  Sender: FDA-Public Use
  Company Number: PHHO2017IL008551

PATIENT
  Age: 65 Year
  Sex: Male
  Weight: 134.4 kg

DRUGS (6)
  1. AIN457 [Suspect]
     Active Substance: SECUKINUMAB
     Dosage: CODE NOT BROKEN
     Route: 058
     Dates: start: 20170301
  2. AIN457 [Suspect]
     Active Substance: SECUKINUMAB
     Dosage: CODE NOT BROKEN
     Route: 058
     Dates: start: 20170620
  3. ENALADEX [Concomitant]
     Active Substance: ENALAPRIL MALEATE
     Indication: HYPERTENSION
     Dosage: 20 MG, QD
     Route: 065
     Dates: start: 201508
  4. GLUCOMIN [Concomitant]
     Active Substance: METFORMIN HYDROCHLORIDE
     Indication: TYPE 2 DIABETES MELLITUS
     Dosage: 850 MG, BID
     Route: 065
     Dates: start: 201307
  5. MICROPIRIN [Concomitant]
     Active Substance: ASPIRIN
     Indication: ATHEROSCLEROSIS PROPHYLAXIS
     Dosage: 100 MG, QD
     Route: 065
     Dates: start: 201512
  6. AIN457 [Suspect]
     Active Substance: SECUKINUMAB
     Dosage: NO TREATMENT
     Route: 065
     Dates: start: 20170524

REACTIONS (1)
  - Cellulitis [Recovered/Resolved with Sequelae]

NARRATIVE: CASE EVENT DATE: 20170517
